FAERS Safety Report 6826703-7 (Version None)
Quarter: 2010Q3

REPORT INFORMATION
  Report Type: 
  Country: None (occurrence: None)
  Receive Date: 20100709
  Receipt Date: 20100705
  Transmission Date: 20110219
  Serious: Yes (Death)
  Sender: FDA-Public Use
  Company Number: CN-JNJFOC-20100701579

PATIENT
  Sex: Male
  Weight: 68.5 kg

DRUGS (2)
  1. SPORANOX [Suspect]
     Indication: PRODUCT USED FOR UNKNOWN INDICATION
     Route: 065
  2. SPORANOX [Suspect]
     Route: 065

REACTIONS (3)
  - ASCITES [None]
  - MICROANGIOPATHY [None]
  - MULTI-ORGAN FAILURE [None]
